FAERS Safety Report 7293479-1 (Version None)
Quarter: 2011Q1

REPORT INFORMATION
  Report Type: 
  Country: None (occurrence: None)
  Receive Date: 20110215
  Receipt Date: 20110209
  Transmission Date: 20110831
  Serious: Yes (Other)
  Sender: FDA-Public Use
  Company Number: FR-BRISTOL-MYERS SQUIBB COMPANY-15545106

PATIENT
  Age: 19 Year
  Sex: Male

DRUGS (3)
  1. ABILIFY [Suspect]
     Indication: SCHIZOPHRENIA
     Route: 048
  2. DIAZEPAM [Concomitant]
  3. AMISULPRIDE [Concomitant]

REACTIONS (1)
  - PATHOLOGICAL GAMBLING [None]
